FAERS Safety Report 17238924 (Version 1)
Quarter: 2020Q1

REPORT INFORMATION
  Report Type: Spontaneous
  Country: US (occurrence: US)
  Receive Date: 20200106
  Receipt Date: 20200106
  Transmission Date: 20200409
  Serious: No
  Sender: FDA-Public Use
  Company Number: US-SA-2020SA001329

PATIENT
  Age: 73 Year
  Sex: Female

DRUGS (1)
  1. LOVENOX [Suspect]
     Active Substance: ENOXAPARIN SODIUM
     Dosage: 40 MG, QD, AT 2 PM
     Route: 065
     Dates: start: 20191226

REACTIONS (1)
  - Injection site pain [Not Recovered/Not Resolved]
